FAERS Safety Report 18009188 (Version 1)
Quarter: 2020Q3

REPORT INFORMATION
  Report Type: Spontaneous
  Country: US (occurrence: US)
  Receive Date: 20200710
  Receipt Date: 20200710
  Transmission Date: 20201103
  Serious: Yes (Other)
  Sender: FDA-Public Use
  Company Number: US-SAOL THERAPEUTICS-2020SAO00028

PATIENT
  Sex: Female

DRUGS (2)
  1. LIORESAL [Suspect]
     Active Substance: BACLOFEN
     Dosage: AFTER CATHETER REVISION, PROGRAMMED AT HALF THE RATE IT WAS ORIGINALLY PROGRAMMED
     Route: 037
     Dates: start: 20200124
  2. LIORESAL [Suspect]
     Active Substance: BACLOFEN
     Dosage: 171.5 ?G, \DAY
     Route: 037
     Dates: end: 20200124

REACTIONS (2)
  - Drug withdrawal syndrome [Recovered/Resolved]
  - Implant site infection [Unknown]
